FAERS Safety Report 7270731-7 (Version None)
Quarter: 2011Q1

REPORT INFORMATION
  Report Type: 
  Country: None (occurrence: None)
  Receive Date: 20110202
  Receipt Date: 20110124
  Transmission Date: 20110831
  Serious: Yes (Hospitalization)
  Sender: FDA-Public Use
  Company Number: B0697452A

PATIENT
  Sex: Female
  Weight: 52 kg

DRUGS (3)
  1. DIAZEPAM [Concomitant]
     Dosage: 10MG PER DAY
     Route: 048
     Dates: start: 20030101
  2. AUGMENTIN '125' [Suspect]
     Indication: TOOTH INFECTION
     Dosage: 2G PER DAY
     Route: 048
     Dates: start: 20101209, end: 20101209
  3. CLONIX [Concomitant]
     Indication: TOOTHACHE
     Dosage: 300MG PER DAY
     Route: 048
     Dates: start: 20101207, end: 20101208

REACTIONS (9)
  - OEDEMA MOUTH [None]
  - TACHYPNOEA [None]
  - GENERALISED ERYTHEMA [None]
  - ANAPHYLACTIC REACTION [None]
  - HYPOTENSION [None]
  - OXYGEN SATURATION DECREASED [None]
  - ERYTHEMA [None]
  - EYE OEDEMA [None]
  - LOCALISED OEDEMA [None]
